FAERS Safety Report 12232857 (Version 2)
Quarter: 2016Q2

REPORT INFORMATION
  Report Type: Spontaneous
  Country: IT (occurrence: IT)
  Receive Date: 20160402
  Receipt Date: 20160521
  Transmission Date: 20160815
  Serious: Yes (Hospitalization)
  Sender: FDA-Public Use
  Company Number: IT-AUROBINDO-AUR-APL-2016-04028

PATIENT
  Age: 55 Year
  Sex: Female

DRUGS (1)
  1. RAMIPRIL 2.5MG [Suspect]
     Active Substance: RAMIPRIL
     Indication: HYPERTENSION
     Dosage: 2.5 MG, DAILY
     Route: 048
     Dates: start: 20160304, end: 20160313

REACTIONS (1)
  - Palpable purpura [Recovering/Resolving]

NARRATIVE: CASE EVENT DATE: 20160311
